FAERS Safety Report 9774560 (Version 1)
Quarter: 2013Q4

REPORT INFORMATION
  Report Type: Spontaneous
  Country: US (occurrence: US)
  Receive Date: 20131220
  Receipt Date: 20131220
  Transmission Date: 20140711
  Serious: Yes (Hospitalization, Other)
  Sender: FDA-Public Use
  Company Number: US-ELI_LILLY_AND_COMPANY-US201312006210

PATIENT
  Sex: Male

DRUGS (10)
  1. HUMALOG LISPRO [Suspect]
     Indication: DIABETES MELLITUS
     Dosage: UNK
     Route: 058
  2. HUMALOG LISPRO [Suspect]
     Dosage: UNK
     Route: 058
  3. RAMIPRIL [Concomitant]
  4. METOPROLOL [Concomitant]
     Dosage: 25 MG, BID
  5. NIASPAN [Concomitant]
     Dosage: 500 MG, QD
  6. PLAVIX [Concomitant]
     Dosage: 75 MG, QD
  7. CRESTOR [Concomitant]
     Dosage: 20 MG, QD
  8. ASPIRIN [Concomitant]
     Dosage: 100 MG, QD
  9. TIMOLOL [Concomitant]
  10. TRAVATAN [Concomitant]

REACTIONS (3)
  - Myocardial infarction [Unknown]
  - Blood glucose increased [Recovered/Resolved]
  - Drug ineffective [Recovered/Resolved]
